FAERS Safety Report 22947575 (Version 3)
Quarter: 2023Q4

REPORT INFORMATION
  Report Type: Spontaneous
  Country: US (occurrence: US)
  Receive Date: 20230915
  Receipt Date: 20231116
  Transmission Date: 20240110
  Serious: No
  Sender: FDA-Public Use
  Company Number: US-SANDOZ-SDZ2023US028328

PATIENT
  Sex: Female

DRUGS (1)
  1. ALBUTEROL SULFATE [Suspect]
     Active Substance: ALBUTEROL SULFATE
     Indication: Lung disorder
     Dosage: UNK
     Route: 065

REACTIONS (6)
  - Cough [Unknown]
  - Productive cough [Unknown]
  - Product dose omission issue [Unknown]
  - Off label use [Unknown]
  - Product delivery mechanism issue [Unknown]
  - Device defective [Unknown]
